FAERS Safety Report 9293782 (Version 1)
Quarter: 2013Q2

REPORT INFORMATION
  Report Type: Spontaneous
  Country: US (occurrence: US)
  Receive Date: 20130516
  Receipt Date: 20130516
  Transmission Date: 20140414
  Serious: Yes (Other)
  Sender: FDA-Public Use
  Company Number: CHPA2013US008113

PATIENT
  Age: 73 Year
  Sex: Female

DRUGS (5)
  1. PRIVATE LABEL [Suspect]
     Indication: SMOKING CESSATION THERAPY
     Dosage: 21 MG, QD
     Route: 062
     Dates: start: 20130501, end: 20130510
  2. MECLIZINE [Suspect]
     Indication: DIZZINESS
     Dosage: 1 DF, QD
     Route: 048
  3. TRIAMTERENE/HCTZ TABLETS USP [Suspect]
     Indication: HYPERTENSION
     Dosage: 37.5 MG, QD
     Route: 048
  4. NEXIUM//ESOMEPRAZOLE SODIUM [Concomitant]
     Indication: DYSPEPSIA
     Dosage: 1 DF, QD
     Route: 048
  5. BAYER ASPIRIN [Concomitant]
     Dosage: 81 MG, QD
     Route: 048

REACTIONS (4)
  - Dyspepsia [Recovering/Resolving]
  - Concomitant disease aggravated [Recovering/Resolving]
  - Headache [Recovered/Resolved]
  - Insomnia [Recovered/Resolved]
